FAERS Safety Report 20369791 (Version 4)
Quarter: 2022Q2

REPORT INFORMATION
  Report Type: Spontaneous
  Country: DE (occurrence: DE)
  Receive Date: 20220124
  Receipt Date: 20220526
  Transmission Date: 20220721
  Serious: Yes (Other)
  Sender: FDA-Public Use
  Company Number: DE-TAKEDA-2022TUS003560

PATIENT
  Sex: Male

DRUGS (3)
  1. ENTYVIO [Suspect]
     Active Substance: VEDOLIZUMAB
     Indication: Colitis ulcerative
     Dosage: UNK UNK, Q4WEEKS
     Route: 065
  2. ENTYVIO [Suspect]
     Active Substance: VEDOLIZUMAB
     Indication: Colitis ulcerative
     Dosage: UNK UNK, Q2WEEKS
     Route: 065
  3. Salofalk [Concomitant]
     Dosage: 4 GRAM, QD

REACTIONS (8)
  - Haematochezia [Unknown]
  - Colitis ulcerative [Recovering/Resolving]
  - Defaecation urgency [Unknown]
  - Dry skin [Unknown]
  - Frequent bowel movements [Unknown]
  - Rash [Unknown]
  - Fatigue [Unknown]
  - Drug effect less than expected [Unknown]
